FAERS Safety Report 6105229-2 (Version None)
Quarter: 2009Q1

REPORT INFORMATION
  Report Type: 
  Country: None (occurrence: None)
  Receive Date: 20090304
  Receipt Date: 20090218
  Transmission Date: 20090719
  Serious: Yes (Other)
  Sender: FDA-Public Use
  Company Number: 2009SP004072

PATIENT
  Age: 58 Year
  Sex: Female
  Weight: 71.2147 kg

DRUGS (4)
  1. MIRALAX [Suspect]
     Indication: CONSTIPATION
     Dosage: 17 GM; QD;PO
     Route: 048
     Dates: start: 20081001
  2. PREVACID [Concomitant]
  3. TOPROL-XL [Concomitant]
  4. TRICOR [Concomitant]

REACTIONS (1)
  - LARGE INTESTINE PERFORATION [None]
